FAERS Safety Report 9798211 (Version 3)
Quarter: 2014Q2

REPORT INFORMATION
  Report Type: Spontaneous
  Country: US (occurrence: US)
  Receive Date: 20140106
  Receipt Date: 20140401
  Transmission Date: 20141212
  Serious: Yes (Congenital Anomaly, Other)
  Sender: FDA-Public Use
  Company Number: US-PFIZER INC-2014002121

PATIENT
  Sex: Female

DRUGS (9)
  1. ZOLOFT [Suspect]
     Indication: ANXIETY
     Dosage: UNK
     Route: 064
     Dates: start: 200202, end: 200202
  2. ZOLOFT [Suspect]
     Indication: DEPRESSION
  3. ZOLOFT [Suspect]
     Indication: AFFECTIVE DISORDER
  4. PRENATAL VITAMINS [Concomitant]
     Dosage: UNK
     Route: 064
  5. ALPRAZOLAM [Concomitant]
     Dosage: UNK
     Route: 064
  6. BUSPIRONE [Concomitant]
     Dosage: UNK
     Route: 064
  7. NESTABS [Concomitant]
     Dosage: UNK
     Route: 064
  8. CLARITIN [Concomitant]
     Dosage: UNK
     Route: 064
  9. PROPO N/APAP [Concomitant]
     Dosage: UNK
     Route: 064

REACTIONS (9)
  - Maternal exposure during pregnancy [Unknown]
  - Transposition of the great vessels [Unknown]
  - Patent ductus arteriosus [Unknown]
  - Congenital pulmonary hypertension [Unknown]
  - Neonatal respiratory distress syndrome [Unknown]
  - Pulmonary artery stenosis congenital [Unknown]
  - Congenital aortic valve incompetence [Unknown]
  - Pulmonary vascular resistance abnormality [Unknown]
  - Atrial septal defect [Unknown]
